FAERS Safety Report 20761280 (Version 1)
Quarter: 2022Q2

REPORT INFORMATION
  Report Type: Spontaneous
  Country: US (occurrence: US)
  Receive Date: 20220428
  Receipt Date: 20220428
  Transmission Date: 20220721
  Serious: Yes (Death, Other)
  Sender: FDA-Public Use
  Company Number: US-BRISTOL-MYERS SQUIBB COMPANY-2022-027724

PATIENT
  Age: 55 Year
  Sex: Female

DRUGS (2)
  1. OPDIVO [Suspect]
     Active Substance: NIVOLUMAB
     Indication: Ovarian cancer
     Dosage: EVERY 21 DAYS
     Route: 065
     Dates: end: 20220330
  2. YERVOY [Suspect]
     Active Substance: IPILIMUMAB
     Indication: Ovarian cancer
     Route: 065
     Dates: end: 20220330

REACTIONS (2)
  - Death [Fatal]
  - Off label use [Unknown]

NARRATIVE: CASE EVENT DATE: 20220420
